FAERS Safety Report 24933862 (Version 1)
Quarter: 2025Q1

REPORT INFORMATION
  Report Type: Report from Study
  Country: US (occurrence: US)
  Receive Date: 20250206
  Receipt Date: 20250206
  Transmission Date: 20250409
  Serious: Yes (Other)
  Sender: EXELIXIS
  Company Number: US-EXELIXIS-CABO-24075278

PATIENT
  Age: 59 Year
  Sex: Male

DRUGS (4)
  1. CABOMETYX [Suspect]
     Active Substance: CABOZANTINIB S-MALATE
     Indication: Renal cell carcinoma
     Dosage: 40 MG, QD
     Dates: start: 20240306
  2. HYDROCORTISONE [Suspect]
     Active Substance: HYDROCORTISONE
     Indication: Product used for unknown indication
  3. FLUDROCORTISONE [Suspect]
     Active Substance: FLUDROCORTISONE
     Indication: Product used for unknown indication
  4. OMEPRAZOLE [Concomitant]
     Active Substance: OMEPRAZOLE

REACTIONS (14)
  - Adrenal insufficiency [Unknown]
  - Blood pressure increased [Unknown]
  - Headache [Unknown]
  - Dizziness [Unknown]
  - Stomatitis [Unknown]
  - Nausea [Unknown]
  - Fatigue [Unknown]
  - Myalgia [Unknown]
  - Renal pain [Unknown]
  - Disturbance in attention [Unknown]
  - Weight increased [Unknown]
  - Blood glucose increased [Unknown]
  - Bone pain [Unknown]
  - Confusional state [Unknown]

NARRATIVE: CASE EVENT DATE: 20240401
